FAERS Safety Report 6331099 (Version 5)
Quarter: 2013Q4

REPORT INFORMATION
  Report Type: Report from Study
  Country: GB (occurrence: GB)
  Receive Date: 20070612
  Receipt Date: 20131107
  Transmission Date: 20140711
  Serious: Yes (Hospitalization, Other)
  Sender: FDA-Public Use
  Company Number: GB-ROCHE-500091

PATIENT
  Age: 45 Year
  Sex: Female
  Weight: 60 kg

DRUGS (5)
  1. PEG-INTERFERON ALFA 2A [Suspect]
     Indication: CHRONIC MYELOID LEUKAEMIA
     Route: 058
  2. PEG-INTERFERON ALFA 2A [Suspect]
     Route: 058
     Dates: start: 20070302, end: 20070316
  3. PEG-INTERFERON ALFA 2A [Suspect]
     Route: 058
     Dates: start: 20070330, end: 20070425
  4. IMATINIB [Suspect]
     Indication: CHRONIC MYELOID LEUKAEMIA
     Route: 048
     Dates: start: 20061114, end: 20070316
  5. PARACETAMOL [Concomitant]
     Indication: MIGRAINE
     Route: 048

REACTIONS (2)
  - Hepatotoxicity [Not Recovered/Not Resolved]
  - Chills [Recovered/Resolved]
